FAERS Safety Report 9398187 (Version 1)
Quarter: 2013Q3

REPORT INFORMATION
  Report Type: Spontaneous
  Country: US (occurrence: US)
  Receive Date: 20130712
  Receipt Date: 20130712
  Transmission Date: 20140515
  Serious: No
  Sender: FDA-Public Use
  Company Number: US-GLAXOSMITHKLINE-A0992600A

PATIENT
  Age: 80 Year
  Sex: Male
  Weight: 93.2 kg

DRUGS (6)
  1. FLOVENT [Suspect]
     Indication: COUGH
     Dosage: 1PUFF TWICE PER DAY
     Route: 055
     Dates: start: 201206
  2. SINGULAIR [Concomitant]
  3. MOMETASONE [Concomitant]
  4. SALINE [Concomitant]
  5. CHLORTHALIDONE [Concomitant]
  6. ALBUTEROL [Concomitant]

REACTIONS (6)
  - Oral mucosal erythema [Not Recovered/Not Resolved]
  - Stomatitis [Not Recovered/Not Resolved]
  - Oral pain [Not Recovered/Not Resolved]
  - Oral candidiasis [Unknown]
  - Cough [Not Recovered/Not Resolved]
  - Drug ineffective [Unknown]
